FAERS Safety Report 6293593-3 (Version None)
Quarter: 2009Q3

REPORT INFORMATION
  Report Type: 
  Country: None (occurrence: None)
  Receive Date: 20090729
  Receipt Date: 20090715
  Transmission Date: 20100115
  Serious: Yes (Other)
  Sender: FDA-Public Use
  Company Number: A-US2009-26130

PATIENT
  Age: 58 Year
  Sex: Male

DRUGS (2)
  1. VENTAVIS [Suspect]
     Indication: PULMONARY ARTERIAL HYPERTENSION
     Dosage: 5 UG, UNK, RESPIRATORY
     Route: 055
     Dates: start: 20090519
  2. ANTITHROMBOTIC AGENTS [Concomitant]

REACTIONS (2)
  - HAEMORRHOIDS [None]
  - INTESTINAL HAEMORRHAGE [None]
